FAERS Safety Report 7321496-1 (Version None)
Quarter: 2011Q1

REPORT INFORMATION
  Report Type: 
  Country: None (occurrence: None)
  Receive Date: 20110228
  Receipt Date: 20100414
  Transmission Date: 20110831
  Serious: No
  Sender: FDA-Public Use
  Company Number: US-PFIZER INC-2010050533

PATIENT
  Sex: Female
  Weight: 63.946 kg

DRUGS (3)
  1. GEODON [Suspect]
     Dosage: UNK
  2. GEODON [Suspect]
     Indication: BIPOLAR DISORDER
     Dosage: UNK
     Dates: start: 20091201
  3. WELLBUTRIN [Concomitant]
     Dosage: UNK

REACTIONS (3)
  - INCREASED APPETITE [None]
  - HYPOMETABOLISM [None]
  - WEIGHT INCREASED [None]
